FAERS Safety Report 14912575 (Version 2)
Quarter: 2018Q3

REPORT INFORMATION
  Report Type: Spontaneous
  Country: GB (occurrence: GB)
  Receive Date: 20180518
  Receipt Date: 20180704
  Transmission Date: 20181010
  Serious: Yes (Other)
  Sender: FDA-Public Use
  Company Number: GB-TORRENT-00016530

PATIENT
  Age: 37 Year
  Sex: Female
  Weight: 60 kg

DRUGS (3)
  1. KEPPRA [Concomitant]
     Active Substance: LEVETIRACETAM
     Indication: EPILEPSY
     Dosage: REDUCED OVER LAST YEAR FROM 1500MG TWICE DAILY
  2. PREGABALIN. [Concomitant]
     Active Substance: PREGABALIN
     Indication: EPILEPSY
  3. LAMOTRIGINE. [Suspect]
     Active Substance: LAMOTRIGINE
     Indication: EPILEPSY
     Dosage: 250MG TWICE DAILY + 25MG EXTRA MORNING GIVING ADVERSE REACTION
     Route: 048

REACTIONS (2)
  - Eye movement disorder [Recovered/Resolved]
  - Eyelid disorder [Recovered/Resolved]
